FAERS Safety Report 7290904-7 (Version None)
Quarter: 2011Q1

REPORT INFORMATION
  Report Type: 
  Country: None (occurrence: None)
  Receive Date: 20110214
  Receipt Date: 20110202
  Transmission Date: 20110831
  Serious: Yes (Hospitalization)
  Sender: FDA-Public Use
  Company Number: ES-JNJFOC-20100800894

PATIENT
  Sex: Female
  Weight: 94 kg

DRUGS (8)
  1. GOLIMUMAB [Suspect]
     Route: 058
  2. HYDROCHLOROTHIAZIDE [Concomitant]
     Route: 048
  3. NAPROXEN [Concomitant]
     Route: 048
  4. GOLIMUMAB [Suspect]
     Indication: PSORIATIC ARTHROPATHY
     Route: 058
  5. PLACEBO [Suspect]
     Indication: PSORIATIC ARTHROPATHY
     Route: 058
  6. ENALAPRIL MALEATE [Concomitant]
     Route: 048
  7. GOLIMUMAB [Suspect]
     Route: 058
  8. OMEPRAZOLE [Concomitant]
     Route: 048

REACTIONS (1)
  - CELLULITIS [None]
